FAERS Safety Report 10568997 (Version 1)
Quarter: 2014Q4

REPORT INFORMATION
  Report Type: Spontaneous
  Country: GB (occurrence: GB)
  Receive Date: 20141106
  Receipt Date: 20141106
  Transmission Date: 20150529
  Serious: Yes (Death, Other)
  Sender: FDA-Public Use
  Company Number: GB-TEVA-519666ISR

PATIENT
  Age: 60 Year
  Sex: Female
  Weight: 94 kg

DRUGS (11)
  1. SYMBICORT [Concomitant]
     Active Substance: BUDESONIDE\FORMOTEROL FUMARATE DIHYDRATE
     Dosage: 2 DOSAGE FORMS DAILY;
  2. AMITRIPTYLINE HYDROCHLORIDE. [Concomitant]
     Active Substance: AMITRIPTYLINE HYDROCHLORIDE
     Indication: MUSCLE RELAXANT THERAPY
     Dosage: 25 MILLIGRAM DAILY; AT NIGHT. INCREASED TO 75MG, THEN REDUCED BACK TO 25MG.
     Dates: start: 20030428
  3. CETIRIZINE HYDROCHLORIDE. [Concomitant]
     Active Substance: CETIRIZINE HYDROCHLORIDE
     Dosage: 10 MILLIGRAM DAILY;
  4. OLMESARTAN [Concomitant]
     Active Substance: OLMESARTAN
     Indication: HYPERTENSION
     Dosage: 40 MILLIGRAM DAILY;
  5. BENDROFLUMETHIAZIDE [Concomitant]
     Active Substance: BENDROFLUMETHIAZIDE
     Indication: HYPERTENSION
     Dosage: 2.5 MILLIGRAM DAILY;
  6. TRAMADOL [Suspect]
     Active Substance: TRAMADOL
     Indication: FRACTURE PAIN
     Dosage: AT NIGHT, MODIFIED-RELEASE TABLET
     Dates: end: 200304
  7. SERTRALINE HYDROCHLORIDE. [Concomitant]
     Active Substance: SERTRALINE HYDROCHLORIDE
     Dosage: 100 MILLIGRAM DAILY;
     Dates: start: 201201
  8. VOLTAROL [Concomitant]
     Active Substance: DICLOFENAC SODIUM
     Route: 061
  9. TRAMADOL [Suspect]
     Active Substance: TRAMADOL
     Indication: FRACTURE PAIN
     Dosage: AT NIGHT, MODIFIED-RELEASE TABLET
     Dates: start: 200304
  10. PARACETAMOL [Concomitant]
     Active Substance: ACETAMINOPHEN
  11. ESOMEPRAZOLE [Concomitant]
     Active Substance: ESOMEPRAZOLE
     Dosage: 40 MILLIGRAM DAILY; AT NIGHT, GASTRO-RESISTANT TABLET

REACTIONS (2)
  - Toxicity to various agents [Fatal]
  - Renal failure [Not Recovered/Not Resolved]
